FAERS Safety Report 19818128 (Version 1)
Quarter: 2021Q3

REPORT INFORMATION
  Report Type: Spontaneous
  Country: US (occurrence: US)
  Receive Date: 20210911
  Receipt Date: 20210911
  Transmission Date: 20211014
  Serious: Yes (Other)
  Sender: FDA-Public Use
  Company Number: NVSC2021US203678

PATIENT
  Age: 80 Year
  Sex: Male

DRUGS (3)
  1. ENZALUTAMIDE [Suspect]
     Active Substance: ENZALUTAMIDE
     Indication: PROSTATE CANCER METASTATIC
     Dosage: UNK
     Route: 065
     Dates: start: 2020
  2. RADIUM [Suspect]
     Active Substance: RADIUM
     Indication: PROSTATE CANCER METASTATIC
     Dosage: UNK (223)
     Route: 065
     Dates: start: 2021
  3. DOCETAXEL. [Suspect]
     Active Substance: DOCETAXEL
     Indication: PROSTATE CANCER METASTATIC
     Dosage: 7 CYCLES
     Route: 065
     Dates: start: 2020

REACTIONS (2)
  - Malignant neoplasm progression [Unknown]
  - Prostate cancer metastatic [Unknown]
